FAERS Safety Report 12552234 (Version 1)
Quarter: 2016Q3

REPORT INFORMATION
  Report Type: Spontaneous
  Country: US (occurrence: None)
  Receive Date: 20160712
  Receipt Date: 20160712
  Transmission Date: 20161109
  Serious: No
  Sender: FDA-Public Use
  Company Number: None

PATIENT
  Age: 67 Year
  Sex: Male
  Weight: 74.39 kg

DRUGS (5)
  1. VIT D-3 [Concomitant]
  2. CRESTOR [Concomitant]
     Active Substance: ROSUVASTATIN CALCIUM
  3. FISH OIL [Concomitant]
     Active Substance: FISH OIL
  4. AVODART [Suspect]
     Active Substance: DUTASTERIDE
     Indication: BENIGN PROSTATIC HYPERPLASIA
     Dosage: 1 PILL/DAY BY MOUTH
     Route: 048
     Dates: start: 20160610, end: 20160620
  5. GLUCOSAMINE CHONDROITIN [Concomitant]
     Active Substance: CHONDROITIN SULFATE (BOVINE)\GLUCOSAMINE HYDROCHLORIDE

REACTIONS (2)
  - Back pain [None]
  - Movement disorder [None]

NARRATIVE: CASE EVENT DATE: 20160620
